FAERS Safety Report 12986027 (Version 2)
Quarter: 2017Q1

REPORT INFORMATION
  Report Type: Spontaneous
  Country: US (occurrence: US)
  Receive Date: 20161130
  Receipt Date: 20170224
  Transmission Date: 20170428
  Serious: No
  Sender: FDA-Public Use
  Company Number: US-ELI_LILLY_AND_COMPANY-US201611006988

PATIENT
  Age: 70 Year
  Sex: Male
  Weight: 80.1 kg

DRUGS (8)
  1. EFFIENT [Suspect]
     Active Substance: PRASUGREL HYDROCHLORIDE
     Indication: STENT PLACEMENT
     Dosage: 10 MG, QD
     Route: 048
     Dates: start: 20160911, end: 20161110
  2. LOPRESSOR [Concomitant]
     Active Substance: METOPROLOL TARTRATE
     Dosage: 0.5 MG, BID
     Route: 048
  3. NITROSTAT [Concomitant]
     Active Substance: NITROGLYCERIN
     Indication: CHEST PAIN
     Dosage: 0.4 MG, PRN
     Route: 060
  4. LISINOPRIL. [Concomitant]
     Active Substance: LISINOPRIL
     Dosage: 5 MG, QD
     Route: 048
  5. EFFIENT [Suspect]
     Active Substance: PRASUGREL HYDROCHLORIDE
     Indication: MYOCARDIAL INFARCTION
  6. LIPITOR [Concomitant]
     Active Substance: ATORVASTATIN CALCIUM
     Dosage: 80 MG, EACH EVENING
     Route: 048
  7. EFFIENT [Suspect]
     Active Substance: PRASUGREL HYDROCHLORIDE
     Indication: PERCUTANEOUS CORONARY INTERVENTION
  8. ASPIRIN                            /00002701/ [Concomitant]
     Active Substance: ASPIRIN
     Dosage: 81 MG, QD
     Route: 048

REACTIONS (4)
  - Peripheral swelling [Recovered/Resolved]
  - Contusion [Recovered/Resolved]
  - Arthralgia [Recovered/Resolved]
  - Joint swelling [Recovered/Resolved]

NARRATIVE: CASE EVENT DATE: 201609
